FAERS Safety Report 7545546-2 (Version None)
Quarter: 2011Q2

REPORT INFORMATION
  Report Type: 
  Country: None (occurrence: None)
  Receive Date: 20110614
  Receipt Date: 20110601
  Transmission Date: 20111010
  Serious: Yes (Hospitalization)
  Sender: FDA-Public Use
  Company Number: JP-BAYER-200811168BYL

PATIENT
  Age: 65 Year
  Sex: Male

DRUGS (4)
  1. FLAVERIC [Concomitant]
     Indication: NASOPHARYNGITIS
     Dosage: DAILY DOSE 60 MG
     Route: 048
     Dates: start: 20080526, end: 20080608
  2. NEXAVAR [Suspect]
     Indication: RENAL CELL CARCINOMA
     Dosage: 400 MG, BID
     Route: 048
     Dates: start: 20080519, end: 20080609
  3. FAMOTIDINE [Concomitant]
     Indication: PROPHYLAXIS AGAINST GASTROINTESTINAL ULCER
     Dosage: DAILY DOSE 20 MG
     Route: 048
     Dates: start: 20080609
  4. MAGNESIUM OXIDE [Concomitant]
     Indication: CONSTIPATION
     Dosage: DAILY DOSE 2 G
     Route: 048
     Dates: start: 20080901

REACTIONS (5)
  - ACUTE CORONARY SYNDROME [None]
  - COUGH [None]
  - HYPERTENSION [None]
  - ALOPECIA [None]
  - BRONCHIOLITIS [None]
